FAERS Safety Report 6137190-9 (Version None)
Quarter: 2009Q1

REPORT INFORMATION
  Report Type: 
  Country: None (occurrence: None)
  Receive Date: 20090330
  Receipt Date: 20090326
  Transmission Date: 20090719
  Serious: Yes (Death, Hospitalization)
  Sender: FDA-Public Use
  Company Number: US-JNJFOC-20090302656

PATIENT
  Sex: Male
  Weight: 77.11 kg

DRUGS (4)
  1. HALDOL [Suspect]
     Indication: AGITATION
     Route: 065
  2. UNSPECIFIED BLOOD THINNER [Concomitant]
     Indication: CARDIAC DISORDER
     Route: 065
  3. UNSPECIFIED CARDIAC MEDICATION [Concomitant]
     Indication: CARDIAC DISORDER
     Route: 065
  4. UNSPECIFIED ANTIBIOTIC [Concomitant]
     Indication: PNEUMONIA
     Route: 065

REACTIONS (8)
  - ASTHENIA [None]
  - DEMENTIA [None]
  - DEPRESSED LEVEL OF CONSCIOUSNESS [None]
  - DYSPHAGIA [None]
  - GAIT DISTURBANCE [None]
  - JOINT STIFFNESS [None]
  - PNEUMONIA [None]
  - TONGUE DISORDER [None]
